FAERS Safety Report 15343095 (Version 1)
Quarter: 2018Q3

REPORT INFORMATION
  Report Type: Report from Study
  Country: CN (occurrence: CN)
  Receive Date: 20180903
  Receipt Date: 20180903
  Transmission Date: 20181010
  Serious: Yes (Other)
  Sender: FDA-Public Use
  Company Number: CN-ROCHE-2176642

PATIENT

DRUGS (1)
  1. CAPECITABINE. [Suspect]
     Active Substance: CAPECITABINE
     Indication: GASTRIC CANCER
     Dosage: MONDAY TO FRIDAY DURING RADIOTHERAPY
     Route: 048

REACTIONS (3)
  - Gastrointestinal disorder [Unknown]
  - Haematotoxicity [Unknown]
  - Bone marrow failure [Unknown]
